FAERS Safety Report 10190326 (Version 2)
Quarter: 2014Q4

REPORT INFORMATION
  Report Type: Spontaneous
  Country: FR (occurrence: FR)
  Receive Date: 20140522
  Receipt Date: 20141121
  Transmission Date: 20150528
  Serious: Yes (Death, Hospitalization, Other)
  Sender: FDA-Public Use
  Company Number: FR-009507513-1405FRA009653

PATIENT
  Age: 70 Year
  Sex: Male

DRUGS (3)
  1. TRIFLUCAN [Concomitant]
     Active Substance: FLUCONAZOLE
     Dosage: STRENGTH: 50 MG/ 5ML, 100 MG, BID
     Route: 048
     Dates: start: 20140425
  2. INVANZ [Suspect]
     Active Substance: ERTAPENEM SODIUM
     Dosage: 1 G, QD
     Route: 042
     Dates: start: 20140425, end: 20140505
  3. DEPAKINE [Interacting]
     Active Substance: VALPROATE SODIUM
     Dosage: 1.5 G, QD
     Route: 048
     Dates: end: 20140503

REACTIONS (3)
  - Anticonvulsant drug level decreased [Not Recovered/Not Resolved]
  - Status epilepticus [Recovered/Resolved]
  - Lung disorder [Fatal]

NARRATIVE: CASE EVENT DATE: 2014
